FAERS Safety Report 7615799-0 (Version None)
Quarter: 2011Q3

REPORT INFORMATION
  Report Type: 
  Country: None (occurrence: None)
  Receive Date: 20110718
  Receipt Date: 20110718
  Transmission Date: 20111222
  Serious: Yes (Hospitalization)
  Sender: FDA-Public Use
  Company Number: None

PATIENT
  Age: 48 Year
  Sex: Female
  Weight: 90.5 kg

DRUGS (1)
  1. IODINE [Suspect]
     Indication: IMAGING PROCEDURE
     Dates: start: 20110614, end: 20110614

REACTIONS (10)
  - OROPHARYNGEAL PAIN [None]
  - BLOOD PRESSURE INCREASED [None]
  - NASAL CONGESTION [None]
  - ANXIETY [None]
  - RESPIRATORY DISTRESS [None]
  - TACHYCARDIA [None]
  - WHEEZING [None]
  - VOMITING [None]
  - CONTRAST MEDIA REACTION [None]
  - SWELLING FACE [None]
